FAERS Safety Report 4557059-0 (Version None)
Quarter: 2005Q1

REPORT INFORMATION
  Report Type: 
  Country: None (occurrence: None)
  Receive Date: 20050120
  Receipt Date: 20041130
  Transmission Date: 20050727
  Serious: Yes (Other)
  Sender: FDA-Public Use
  Company Number: US-GLAXOSMITHKLINE-A0535570A

PATIENT
  Age: 26 Year
  Sex: Female
  Weight: 46.8 kg

DRUGS (2)
  1. WELLBUTRIN [Suspect]
     Indication: DEPRESSION
     Route: 048
     Dates: start: 20041019, end: 20041105
  2. NO CONCURRENT MEDICATION [Concomitant]

REACTIONS (5)
  - AMNESIA [None]
  - EXCORIATION [None]
  - GRAND MAL CONVULSION [None]
  - LOSS OF CONSCIOUSNESS [None]
  - SYNCOPE [None]
